FAERS Safety Report 13267169 (Version 1)
Quarter: 2017Q1

REPORT INFORMATION
  Report Type: Spontaneous
  Country: US (occurrence: US)
  Receive Date: 20170224
  Receipt Date: 20170224
  Transmission Date: 20170428
  Serious: Yes (Death, Other)
  Sender: FDA-Public Use
  Company Number: US-AUROBINDO-AUR-APL-2017-29913

PATIENT
  Age: 51 Year
  Sex: Female

DRUGS (1)
  1. TRANEXAMIC ACID. [Suspect]
     Active Substance: TRANEXAMIC ACID
     Indication: ANTICOAGULANT THERAPY
     Dosage: 10 MG/KG/H)
     Route: 065

REACTIONS (2)
  - Cardiac arrest [Fatal]
  - Thrombosis [None]
